FAERS Safety Report 8931493 (Version 2)
Quarter: 2012Q4

REPORT INFORMATION
  Report Type: 
  Country: US (occurrence: US)
  Receive Date: 20121121
  Receipt Date: 20121212
  Transmission Date: 20130627
  Serious: Yes (Death)
  Sender: FDA-Public Use
  Company Number: US-ASTELLAS-1106481

PATIENT
  Age: 82 Year
  Sex: Female

DRUGS (3)
  1. TARCEVA [Suspect]
     Indication: VULVAL CANCER
     Route: 048
     Dates: start: 20091222, end: 20100224
  2. TARCEVA [Suspect]
     Indication: LUNG NEOPLASM MALIGNANT
     Route: 048
  3. TARCEVA [Suspect]
     Indication: CERVIX CARCINOMA
     Route: 048

REACTIONS (4)
  - Pleural effusion [Fatal]
  - Pneumonia [Fatal]
  - Cardiac failure congestive [Fatal]
  - Respiratory failure [Fatal]
